FAERS Safety Report 23546059 (Version 1)
Quarter: 2024Q1

REPORT INFORMATION
  Report Type: Spontaneous
  Country: US (occurrence: US)
  Receive Date: 20240220
  Receipt Date: 20240220
  Transmission Date: 20240409
  Serious: No
  Sender: FDA-Public Use
  Company Number: US-MYLANLABS-2024M1010436

PATIENT
  Sex: Female
  Weight: 59.87 kg

DRUGS (1)
  1. ESTRADIOL TRANSDERMAL SYSTEM [Suspect]
     Active Substance: ESTRADIOL
     Indication: Hysterectomy
     Dosage: UNK
     Route: 062
     Dates: start: 20231207

REACTIONS (5)
  - Skin irritation [Unknown]
  - Hormone level abnormal [Unknown]
  - Skin burning sensation [Unknown]
  - Breast tenderness [Unknown]
  - Application site reaction [Unknown]
